FAERS Safety Report 7021086-4 (Version None)
Quarter: 2010Q3

REPORT INFORMATION
  Report Type: 
  Country: None (occurrence: None)
  Receive Date: 20100929
  Receipt Date: 20100923
  Transmission Date: 20110219
  Serious: Yes (Life-Threatening, Hospitalization, Other)
  Sender: FDA-Public Use
  Company Number: FR-PFIZER INC-2010110109

PATIENT
  Age: 84 Year
  Sex: Female
  Weight: 45 kg

DRUGS (6)
  1. CELEBREX [Suspect]
     Indication: JOINT DISLOCATION
     Dosage: 200 MG, 1X/DAY
  2. CELEBREX [Suspect]
     Indication: OSTEOARTHRITIS
  3. RILMENIDINE [Concomitant]
     Indication: HYPERTENSION
     Dosage: 1 MG, 1X/DAY
     Route: 048
  4. COAPROVEL [Concomitant]
     Indication: HYPERTENSION
     Dosage: 300/25 MG, 1X/DAY
     Route: 048
  5. DEDROGYL [Concomitant]
     Indication: OSTEOPOROSIS
     Dosage: UNK
     Route: 048
  6. ASPEGIC 1000 [Concomitant]

REACTIONS (1)
  - GASTROINTESTINAL HAEMORRHAGE [None]
